FAERS Safety Report 18619485 (Version 2)
Quarter: 2021Q1

REPORT INFORMATION
  Report Type: Spontaneous
  Country: US (occurrence: US)
  Receive Date: 20201215
  Receipt Date: 20210108
  Transmission Date: 20210419
  Serious: Yes (Hospitalization, Other)
  Sender: FDA-Public Use
  Company Number: US-CATALYST PHARMACEUTICALS, INC-2020CAT00600

PATIENT
  Age: 60 Year
  Sex: Female

DRUGS (2)
  1. FIRDAPSE [Suspect]
     Active Substance: AMIFAMPRIDINE PHOSPHATE
     Dosage: UNK LOWER DOSE
     Dates: start: 2020, end: 2020
  2. FIRDAPSE [Suspect]
     Active Substance: AMIFAMPRIDINE PHOSPHATE
     Indication: MYASTHENIC SYNDROME
     Dosage: UNK
     Dates: end: 2020

REACTIONS (5)
  - Unevaluable event [Unknown]
  - Dyspnoea [Not Recovered/Not Resolved]
  - Asthenia [Not Recovered/Not Resolved]
  - Seizure [Recovered/Resolved]
  - Myasthenic syndrome [Not Recovered/Not Resolved]

NARRATIVE: CASE EVENT DATE: 202011
